FAERS Safety Report 6303479-3 (Version None)
Quarter: 2009Q3

REPORT INFORMATION
  Report Type: 
  Country: None (occurrence: None)
  Receive Date: 20090810
  Receipt Date: 20090730
  Transmission Date: 20100115
  Serious: Yes (Hospitalization, Other)
  Sender: FDA-Public Use
  Company Number: PHHY2009FR31581

PATIENT
  Sex: Female

DRUGS (1)
  1. TASIGNA [Suspect]
     Indication: CHRONIC MYELOID LEUKAEMIA
     Dosage: 200 MG, UNK
     Route: 048
     Dates: start: 20090416

REACTIONS (10)
  - BACK PAIN [None]
  - CHEST PAIN [None]
  - FLANK PAIN [None]
  - GROIN PAIN [None]
  - HYPERTHERMIA [None]
  - LUNG DISORDER [None]
  - MUSCULOSKELETAL CHEST PAIN [None]
  - PYREXIA [None]
  - RENAL COLIC [None]
  - VIRAL INFECTION [None]
